FAERS Safety Report 9901865 (Version 3)
Quarter: 2014Q2

REPORT INFORMATION
  Report Type: Report from Study
  Country: JP (occurrence: JP)
  Receive Date: 20140217
  Receipt Date: 20140606
  Transmission Date: 20141212
  Serious: Yes (Hospitalization)
  Sender: FDA-Public Use
  Company Number: JP-VIIV HEALTHCARE LIMITED-B0860232A

PATIENT
  Age: 8 Decade
  Sex: Male
  Weight: 63 kg

DRUGS (33)
  1. CELSENTRI [Suspect]
     Indication: ACQUIRED IMMUNODEFICIENCY SYNDROME
     Route: 048
     Dates: start: 20110615
  2. ISENTRESS [Suspect]
     Indication: ACQUIRED IMMUNODEFICIENCY SYNDROME
     Route: 048
     Dates: start: 20110615
  3. INTELENCE [Suspect]
     Indication: ACQUIRED IMMUNODEFICIENCY SYNDROME
     Route: 048
     Dates: start: 20110615
  4. OLMETEC [Suspect]
     Indication: HYPERTENSION
     Dosage: 10MG PER DAY
     Route: 048
     Dates: start: 20110531, end: 20110614
  5. OLMETEC [Suspect]
     Indication: HYPERTENSION
     Dosage: 20MG PER DAY
     Route: 048
     Dates: start: 20110615, end: 20110628
  6. OLMETEC [Suspect]
     Indication: HYPERTENSION
     Dosage: 40MG PER DAY
     Route: 048
     Dates: start: 20110629, end: 20121217
  7. VIRAMUNE [Concomitant]
     Indication: ACQUIRED IMMUNODEFICIENCY SYNDROME
     Route: 048
     Dates: start: 20060130, end: 20060212
  8. VIRAMUNE [Concomitant]
     Indication: ACQUIRED IMMUNODEFICIENCY SYNDROME
     Route: 048
     Dates: start: 20060213, end: 20060226
  9. VIRAMUNE [Concomitant]
     Indication: ACQUIRED IMMUNODEFICIENCY SYNDROME
     Route: 048
     Dates: start: 20060227, end: 20060312
  10. VIRAMUNE [Concomitant]
     Indication: ACQUIRED IMMUNODEFICIENCY SYNDROME
     Route: 048
     Dates: start: 20060313, end: 20060326
  11. VIRAMUNE [Concomitant]
     Indication: ACQUIRED IMMUNODEFICIENCY SYNDROME
     Route: 048
     Dates: start: 20060327, end: 20060409
  12. VIRAMUNE [Concomitant]
     Indication: ACQUIRED IMMUNODEFICIENCY SYNDROME
     Route: 048
     Dates: start: 20060410, end: 20110614
  13. VIRACEPT [Concomitant]
     Indication: ACQUIRED IMMUNODEFICIENCY SYNDROME
     Route: 048
     Dates: end: 20110614
  14. VIREAD [Concomitant]
     Indication: ACQUIRED IMMUNODEFICIENCY SYNDROME
     Route: 048
     Dates: end: 20110614
  15. VASOLAN [Concomitant]
     Indication: ATRIAL FIBRILLATION
     Dosage: 40MG THREE TIMES PER DAY
     Route: 065
     Dates: end: 20110530
  16. TENORMIN [Concomitant]
     Indication: ATRIAL FIBRILLATION
     Dosage: 25MG PER DAY
     Route: 048
     Dates: start: 20110531, end: 20110619
  17. TAMBOCOR [Concomitant]
     Indication: ATRIAL FIBRILLATION
     Dosage: 50MG TWICE PER DAY
     Route: 065
     Dates: start: 20110620, end: 20130107
  18. AMLODIN [Concomitant]
     Indication: HYPERTENSION
     Dosage: 5MG PER DAY
     Route: 048
     Dates: start: 20111114, end: 20111211
  19. AMLODIN [Concomitant]
     Indication: HYPERTENSION
     Dosage: 10MG PER DAY
     Route: 048
     Dates: start: 20111212
  20. FLUITRAN [Concomitant]
     Indication: HYPERTENSION
     Dosage: 2MG PER DAY
     Route: 048
     Dates: start: 20120206, end: 20120402
  21. FUROSEMIDE [Concomitant]
     Indication: HYPERKALAEMIA
     Dosage: 20MG PER DAY
     Route: 065
     Dates: start: 20120220, end: 20120319
  22. FUROSEMIDE [Concomitant]
     Indication: HYPERKALAEMIA
     Dosage: 20MG PER DAY
     Route: 065
     Dates: start: 20120320
  23. SUNRYTHM [Concomitant]
     Indication: ATRIAL FIBRILLATION
     Dosage: 500MG THREE TIMES PER DAY
     Route: 065
     Dates: start: 20130315
  24. DIAMOX [Concomitant]
     Indication: VITREOUS HAEMORRHAGE
     Dosage: 250MG PER DAY
     Route: 065
     Dates: start: 20130305, end: 20130314
  25. DIAMOX [Concomitant]
     Indication: OCULAR HYPERTENSION
     Dosage: 250MG TWICE PER DAY
     Route: 065
     Dates: start: 20130326
  26. ASPARA POTASSIUM [Concomitant]
     Indication: VITREOUS HAEMORRHAGE
     Dosage: 300MG TWICE PER DAY
     Route: 065
     Dates: start: 20130327
  27. XALATAN [Concomitant]
     Indication: OCULAR HYPERTENSION
     Dosage: 1IUAX PER DAY
     Route: 031
     Dates: start: 20130225
  28. TIMOPTOL [Concomitant]
     Indication: OCULAR HYPERTENSION
     Dosage: 1IUAX TWICE PER DAY
     Route: 031
     Dates: start: 20130314
  29. TRUSOPT [Concomitant]
     Indication: OCULAR HYPERTENSION
     Dosage: 1IUAX THREE TIMES PER DAY
     Route: 031
     Dates: start: 20130314
  30. LACTEC [Concomitant]
     Indication: GASTROENTERITIS
     Dosage: 500ML PER DAY
     Route: 042
     Dates: start: 20120220, end: 20120220
  31. ALOSITOL [Concomitant]
     Indication: HYPERURICAEMIA
     Dosage: 100MG TWICE PER DAY
     Route: 048
     Dates: start: 20120401
  32. BAYASPIRIN [Concomitant]
     Indication: CEREBRAL INFARCTION
     Dosage: 100MG PER DAY
     Route: 048
     Dates: start: 20120401
  33. BEVACIZUMAB [Concomitant]
     Indication: GLAUCOMA
     Route: 042
     Dates: start: 20130326, end: 20130326

REACTIONS (6)
  - Cerebral infarction [Recovering/Resolving]
  - Vitreous haemorrhage [Recovered/Resolved]
  - Glaucoma [Not Recovered/Not Resolved]
  - Hyperuricaemia [Recovering/Resolving]
  - Hyperkalaemia [Recovered/Resolved]
  - Gastroenteritis [Recovering/Resolving]
